FAERS Safety Report 12944289 (Version 8)
Quarter: 2017Q3

REPORT INFORMATION
  Report Type: Spontaneous
  Country: KR (occurrence: KR)
  Receive Date: 20161115
  Receipt Date: 20170828
  Transmission Date: 20171127
  Serious: Yes (Hospitalization, Other)
  Sender: FDA-Public Use
  Company Number: KR-009507513-1607KOR008074

PATIENT
  Age: 63 Year
  Sex: Female
  Weight: 68.7 kg

DRUGS (46)
  1. ENDOXAN [Concomitant]
     Active Substance: CYCLOPHOSPHAMIDE
     Indication: DIFFUSE LARGE B-CELL LYMPHOMA
     Dosage: 1252 MG, ONCE, CYCLE 1
     Route: 042
     Dates: start: 20160714, end: 20160714
  2. ENDOXAN [Concomitant]
     Active Substance: CYCLOPHOSPHAMIDE
     Dosage: 1282 MG, ONCE, CYCLE 5
     Route: 042
     Dates: start: 20161011, end: 20161011
  3. ALOXI [Concomitant]
     Active Substance: PALONOSETRON HYDROCHLORIDE
     Dosage: 0.25 MG, ONCE
     Route: 042
     Dates: start: 20160825, end: 20160825
  4. STRIBILD [Concomitant]
     Active Substance: COBICISTAT\ELVITEGRAVIR\EMTRICITABINE\TENOFOVIR DISOPROXIL FUMARATE
     Indication: CHRONIC HEPATITIS B
     Dosage: 1 TABLET, QD
     Route: 048
     Dates: start: 20160713
  5. CARDIOXANE [Concomitant]
     Active Substance: DEXRAZOXANE HYDROCHLORIDE
     Indication: PROPHYLAXIS
     Dosage: 840 MG, ONCE
     Route: 042
     Dates: start: 20160714, end: 20160714
  6. EMEND (FOSAPREPITANT DIMEGLUMINE) [Suspect]
     Active Substance: FOSAPREPITANT DIMEGLUMINE
     Dosage: 150 MG, ONCE
     Route: 042
     Dates: start: 20161011, end: 20161011
  7. ENDOXAN [Concomitant]
     Active Substance: CYCLOPHOSPHAMIDE
     Dosage: 1267 MG, ONCE, CYCLE 3
     Route: 042
     Dates: start: 20160825, end: 20160825
  8. DOXORUBICIN HYDROCHLORIDE. [Concomitant]
     Active Substance: DOXORUBICIN HYDROCHLORIDE
     Dosage: 86 MG, ONCE, CYCLE 4
     Route: 042
     Dates: start: 20160920, end: 20160920
  9. DOXORUBICIN HYDROCHLORIDE. [Concomitant]
     Active Substance: DOXORUBICIN HYDROCHLORIDE
     Dosage: 85 MG, ONCE, CYCLE 5
     Route: 042
     Dates: start: 20161011, end: 20161011
  10. ALOXI [Concomitant]
     Active Substance: PALONOSETRON HYDROCHLORIDE
     Dosage: 0.25 MG, ONCE
     Route: 042
     Dates: start: 20160804, end: 20160804
  11. ENDOXAN [Concomitant]
     Active Substance: CYCLOPHOSPHAMIDE
     Dosage: 1267 MG, ONCE, CYCLE 2
     Route: 042
     Dates: start: 20160804, end: 20160804
  12. DOXORUBICIN HYDROCHLORIDE. [Concomitant]
     Active Substance: DOXORUBICIN HYDROCHLORIDE
     Dosage: 84 MG, ONCE, CYCLE 6
     Route: 042
     Dates: start: 20161103, end: 20161103
  13. VINCRISTINE SULFATE. [Concomitant]
     Active Substance: VINCRISTINE SULFATE
     Indication: DIFFUSE LARGE B-CELL LYMPHOMA
     Dosage: 2 MG, ONCE, CYCLE 1; STRENGTH 1MG/ML 1 ML
     Route: 042
     Dates: start: 20160714, end: 20160714
  14. VINCRISTINE SULFATE. [Concomitant]
     Active Substance: VINCRISTINE SULFATE
     Dosage: 2 MG, ONCE, CYCLE 4, STRENGTH 1MG/ML 1ML
     Route: 042
     Dates: start: 20160920, end: 20160920
  15. CARDIOXANE [Concomitant]
     Active Substance: DEXRAZOXANE HYDROCHLORIDE
     Dosage: 860 MG, ONCE
     Route: 042
     Dates: start: 20160920, end: 20160920
  16. VAROSC [Concomitant]
     Indication: HYPERTENSION
     Dosage: 5 MG, QD
     Route: 048
     Dates: start: 2012, end: 20160802
  17. EMEND (FOSAPREPITANT DIMEGLUMINE) [Suspect]
     Active Substance: FOSAPREPITANT DIMEGLUMINE
     Dosage: 150 MG, ONCE
     Route: 042
     Dates: start: 20160825, end: 20160825
  18. MABTHERA [Concomitant]
     Active Substance: RITUXIMAB
     Indication: DIFFUSE LARGE B-CELL LYMPHOMA
     Dosage: 626 MG, ONCE, CYCLE 1
     Route: 042
     Dates: start: 20160714, end: 20160714
  19. MABTHERA [Concomitant]
     Active Substance: RITUXIMAB
     Dosage: 633 MG, ONCE, CYCLE 2
     Route: 042
     Dates: start: 20160804, end: 20160804
  20. DOXORUBICIN HYDROCHLORIDE. [Concomitant]
     Active Substance: DOXORUBICIN HYDROCHLORIDE
     Dosage: 84 MG, ONCE, CYCLE 3
     Route: 042
     Dates: start: 20160825, end: 20160825
  21. VINCRISTINE SULFATE. [Concomitant]
     Active Substance: VINCRISTINE SULFATE
     Dosage: 2 MG, ONCE, CYCLE 5, STRENGTH 1MG/ML 1ML
     Route: 042
     Dates: start: 20161011, end: 20161011
  22. VINCRISTINE SULFATE. [Concomitant]
     Active Substance: VINCRISTINE SULFATE
     Dosage: 2 MG, ONCE, CYCLE 6, STRENGTH 1MG/ML 1ML
     Route: 042
     Dates: start: 20161103, end: 20161103
  23. ALOXI [Concomitant]
     Active Substance: PALONOSETRON HYDROCHLORIDE
     Dosage: 0.25 MG, ONCE
     Route: 042
     Dates: start: 20160920, end: 20160920
  24. CARDIOXANE [Concomitant]
     Active Substance: DEXRAZOXANE HYDROCHLORIDE
     Dosage: 840 MG, ONCE
     Route: 042
     Dates: start: 20160804, end: 20160804
  25. MABTHERA [Concomitant]
     Active Substance: RITUXIMAB
     Dosage: 633 MG, ONCE, CYCLE 3
     Route: 042
     Dates: start: 20160825, end: 20160825
  26. MABTHERA [Concomitant]
     Active Substance: RITUXIMAB
     Dosage: 633.7 MG, ONCE, CYCLE 6
     Route: 042
     Dates: start: 20161103, end: 20161103
  27. VINCRISTINE SULFATE. [Concomitant]
     Active Substance: VINCRISTINE SULFATE
     Dosage: 2 MG, ONCE, CYCLE 3, STRENGTH 1MG/ML 1ML
     Route: 042
     Dates: start: 20160825, end: 20160825
  28. ALOXI [Concomitant]
     Active Substance: PALONOSETRON HYDROCHLORIDE
     Indication: PROPHYLAXIS OF NAUSEA AND VOMITING
     Dosage: 0.25 MG, ONCE
     Route: 042
     Dates: start: 20160714, end: 20160714
  29. CARDIOXANE [Concomitant]
     Active Substance: DEXRAZOXANE HYDROCHLORIDE
     Dosage: 840 MG, ONCE
     Route: 042
     Dates: start: 20160825, end: 20160825
  30. ZYLORIC [Concomitant]
     Active Substance: ALLOPURINOL
     Indication: PROPHYLAXIS
     Dosage: 100 MG, TID
     Route: 048
     Dates: start: 20160713, end: 20160824
  31. EMEND (FOSAPREPITANT DIMEGLUMINE) [Suspect]
     Active Substance: FOSAPREPITANT DIMEGLUMINE
     Indication: PROPHYLAXIS OF NAUSEA AND VOMITING
     Dosage: 150 MG, ONCE
     Route: 042
     Dates: start: 20160714, end: 20160714
  32. EMEND (FOSAPREPITANT DIMEGLUMINE) [Suspect]
     Active Substance: FOSAPREPITANT DIMEGLUMINE
     Dosage: 150 MG, ONCE
     Route: 042
     Dates: start: 20160804, end: 20160804
  33. EMEND (FOSAPREPITANT DIMEGLUMINE) [Suspect]
     Active Substance: FOSAPREPITANT DIMEGLUMINE
     Dosage: 150 MG, ONCE
     Route: 042
     Dates: start: 20160920, end: 20160920
  34. EMEND (FOSAPREPITANT DIMEGLUMINE) [Suspect]
     Active Substance: FOSAPREPITANT DIMEGLUMINE
     Dosage: 150 MG, ONCE
     Route: 042
     Dates: start: 20161103, end: 20161103
  35. MABTHERA [Concomitant]
     Active Substance: RITUXIMAB
     Dosage: 645 MG, ONCE, CYCLE 4
     Route: 042
     Dates: start: 20160920, end: 20160920
  36. ENDOXAN [Concomitant]
     Active Substance: CYCLOPHOSPHAMIDE
     Dosage: 1290 MG, ONCE, CYCLE 4
     Route: 042
     Dates: start: 20160920, end: 20160920
  37. DOXORUBICIN HYDROCHLORIDE. [Concomitant]
     Active Substance: DOXORUBICIN HYDROCHLORIDE
     Dosage: 84 MG, ONCE, CYCLE 2
     Route: 042
     Dates: start: 20160804, end: 20160804
  38. ALOXI [Concomitant]
     Active Substance: PALONOSETRON HYDROCHLORIDE
     Dosage: 0.25 MG, ONCE
     Route: 042
     Dates: start: 20161011, end: 20161011
  39. ALOXI [Concomitant]
     Active Substance: PALONOSETRON HYDROCHLORIDE
     Dosage: 0.25 MG, ONCE
     Route: 042
     Dates: start: 20161103, end: 20161103
  40. HYDROCHLOROTHIAZIDE (+) VALSARTAN [Concomitant]
     Active Substance: HYDROCHLOROTHIAZIDE\VALSARTAN
     Indication: HYPERTENSION
     Dosage: 1 TABLET, QD
     Route: 048
     Dates: start: 2012, end: 20160802
  41. CARDIOXANE [Concomitant]
     Active Substance: DEXRAZOXANE HYDROCHLORIDE
     Dosage: 840 MG, ONCE
     Route: 042
     Dates: start: 20161103, end: 20161103
  42. MABTHERA [Concomitant]
     Active Substance: RITUXIMAB
     Dosage: 641 MG, ONCE, CYCLE 5
     Route: 042
     Dates: start: 20161011, end: 20161011
  43. ENDOXAN [Concomitant]
     Active Substance: CYCLOPHOSPHAMIDE
     Dosage: 1267 MG, ONCE, CYCLE 6
     Route: 042
     Dates: start: 20161103, end: 20161103
  44. DOXORUBICIN HYDROCHLORIDE. [Concomitant]
     Active Substance: DOXORUBICIN HYDROCHLORIDE
     Indication: DIFFUSE LARGE B-CELL LYMPHOMA
     Dosage: 84 MG, ONCE, CYCLE 1
     Route: 042
     Dates: start: 20160714, end: 20160714
  45. VINCRISTINE SULFATE. [Concomitant]
     Active Substance: VINCRISTINE SULFATE
     Dosage: 2 MG, ONCE, CYCLE 2, STRENGTH 1MG/ML 1ML
     Route: 042
     Dates: start: 20160804, end: 20160804
  46. CARDIOXANE [Concomitant]
     Active Substance: DEXRAZOXANE HYDROCHLORIDE
     Dosage: 850 MG, ONCE
     Route: 042
     Dates: start: 20161011, end: 20161011

REACTIONS (11)
  - Infusion related reaction [Recovered/Resolved]
  - Herpes zoster [Recovered/Resolved]
  - Post herpetic neuralgia [Recovered/Resolved]
  - Nausea [Recovered/Resolved]
  - Nausea [Recovered/Resolved]
  - Nausea [Recovered/Resolved]
  - Nausea [Recovered/Resolved]
  - Constipation [Recovered/Resolved]
  - Nausea [Recovered/Resolved]
  - Neutrophil count decreased [Recovered/Resolved]
  - Constipation [Recovered/Resolved]

NARRATIVE: CASE EVENT DATE: 20160714
